FAERS Safety Report 22384941 (Version 1)
Quarter: 2023Q2

REPORT INFORMATION
  Report Type: Spontaneous
  Country: CN (occurrence: CN)
  Receive Date: 20230530
  Receipt Date: 20230530
  Transmission Date: 20230721
  Serious: Yes (Other)
  Sender: FDA-Public Use
  Company Number: CN-BAYER-2023A075427

PATIENT
  Age: 37 Year
  Sex: Male
  Weight: 75 kg

DRUGS (1)
  1. AVELOX [Suspect]
     Active Substance: MOXIFLOXACIN HYDROCHLORIDE
     Indication: Upper respiratory tract infection
     Dosage: 400 MG, BID
     Route: 048
     Dates: start: 20230211, end: 20230212

REACTIONS (3)
  - Arrhythmia [Recovered/Resolved]
  - Palpitations [Recovered/Resolved]
  - Off label use [None]

NARRATIVE: CASE EVENT DATE: 20230211
